FAERS Safety Report 8789859 (Version 1)
Quarter: 2012Q4

REPORT INFORMATION
  Report Type: 
  Country: JP (occurrence: JP)
  Receive Date: 20120917
  Receipt Date: 20120917
  Transmission Date: 20130627
  Serious: Yes (Death)
  Sender: FDA-Public Use
  Company Number: JP-ASTRAZENECA-2012SE71768

PATIENT
  Age: 56 Year
  Sex: Male

DRUGS (1)
  1. SEROQUEL [Suspect]
     Route: 048
     Dates: start: 200905, end: 200907

REACTIONS (1)
  - Hepatitis fulminant [Fatal]
